FAERS Safety Report 8312626-3 (Version None)
Quarter: 2012Q2

REPORT INFORMATION
  Report Type: 
  Country: None (occurrence: None)
  Receive Date: 20120424
  Receipt Date: 20120416
  Transmission Date: 20120825
  Serious: Yes (Other)
  Sender: FDA-Public Use
  Company Number: DSA_55172_2012

PATIENT
  Sex: Female
  Weight: 135 kg

DRUGS (3)
  1. NUVARING [Concomitant]
  2. ZOVIRAX [Suspect]
     Indication: PRODUCT USED FOR UNKNOWN INDICATION
     Dosage: (1 DF, TWICE ONLY TOPICAL)
     Route: 061
     Dates: start: 20120214, end: 20120214
  3. SYNTHROID [Concomitant]

REACTIONS (4)
  - APPLICATION SITE SWELLING [None]
  - APPLICATION SITE PAIN [None]
  - APPLICATION SITE ERYTHEMA [None]
  - APPLICATION SITE RASH [None]
